FAERS Safety Report 24095759 (Version 1)
Quarter: 2024Q3

REPORT INFORMATION
  Report Type: Spontaneous
  Country: CH (occurrence: CH)
  Receive Date: 20240716
  Receipt Date: 20240716
  Transmission Date: 20241017
  Serious: Yes (Other)
  Sender: MACLEODS
  Company Number: CH-MLMSERVICE-20240627-PI114828-00330-4

PATIENT
  Age: 52 Year
  Sex: Female

DRUGS (1)
  1. VENLAFAXINE [Suspect]
     Active Substance: VENLAFAXINE HYDROCHLORIDE
     Indication: Depression
     Dosage: FOR }2 YEARS
     Route: 065
     Dates: end: 202107

REACTIONS (3)
  - Cardiomyopathy [Recovering/Resolving]
  - Ventricular hypertrophy [Recovering/Resolving]
  - Hypertension [Recovering/Resolving]
